FAERS Safety Report 4595131-X (Version None)
Quarter: 2005Q1

REPORT INFORMATION
  Report Type: 
  Country: None (occurrence: None)
  Receive Date: 20050224
  Receipt Date: 20020801
  Transmission Date: 20050727
  Serious: Yes (Hospitalization)
  Sender: FDA-Public Use
  Company Number: GXKR2002GB00442

PATIENT
  Sex: Male

DRUGS (12)
  1. OMEPRAZOLE [Suspect]
     Indication: VOMITING
     Dosage: 20 MG, ORAL
     Route: 048
     Dates: start: 20020507, end: 20020521
  2. DEXTROPROPOXPHENE+PARACETAMOL (NGX) (DEXTROPROPOXYPHENE, PARACETAMOL) [Suspect]
     Indication: PAIN
     Dosage: 1 - 2 CAPSULE, ORAL
     Route: 048
     Dates: start: 20020507, end: 20020521
  3. TRIMETHOPRIM (NGX) (TRIMETHOPRIM) [Suspect]
     Indication: STAPHYLOCOCCAL INFECTION
     Dosage: 200 MG,
     Dates: start: 20020513, end: 20020517
  4. DOMPERIDONE (NGX) (DOMPERIDONE) [Suspect]
     Dosage: 10 MG,
     Dates: start: 20020517, end: 20020520
  5. DIGOXIN [Concomitant]
  6. FLUVASTATIN (FLUVASTATIN) [Concomitant]
  7. ASPIRIN [Concomitant]
  8. FRUSEMIDE (FRUSEMIDE) [Concomitant]
  9. WARFARIN SODIUM [Concomitant]
  10. RAMIPRIL [Concomitant]
  11. VITAMIN C (ASCORBIC ACID) [Concomitant]
  12. ZINC (ZINC) [Concomitant]

REACTIONS (5)
  - FATIGUE [None]
  - HEPATITIS [None]
  - PAIN [None]
  - STAPHYLOCOCCAL INFECTION [None]
  - VOMITING [None]
